FAERS Safety Report 9850684 (Version 2)
Quarter: 2014Q1

REPORT INFORMATION
  Report Type: Spontaneous
  Country: CH (occurrence: CH)
  Receive Date: 20140128
  Receipt Date: 20140210
  Transmission Date: 20141002
  Serious: Yes (Hospitalization, Other)
  Sender: FDA-Public Use
  Company Number: CH-AMGEN-CHESP2014004783

PATIENT
  Age: 55 Year
  Sex: Male
  Weight: 90 kg

DRUGS (4)
  1. XGEVA [Suspect]
     Indication: PROSTATE CANCER
     Dosage: 120 MG, QMO
     Route: 058
     Dates: start: 20131022
  2. XGEVA [Suspect]
     Indication: METASTASES TO BONE
  3. BICALUTAMID [Concomitant]
     Indication: PROSTATE CANCER
     Dosage: 50 MG, QD
     Route: 048
     Dates: start: 20131022
  4. LEUPRORELIN [Concomitant]
     Indication: PROSTATE CANCER
     Dosage: UNK UNK, Q3MO
     Route: 058
     Dates: start: 20131022

REACTIONS (3)
  - Bone marrow tumour cell infiltration [Unknown]
  - Haemoglobin decreased [Not Recovered/Not Resolved]
  - Pain [Unknown]
